FAERS Safety Report 19592930 (Version 1)
Quarter: 2021Q3

REPORT INFORMATION
  Report Type: Spontaneous
  Country: US (occurrence: US)
  Receive Date: 20210722
  Receipt Date: 20210722
  Transmission Date: 20211014
  Serious: No
  Sender: FDA-Public Use
  Company Number: US-BEH-2021134182

PATIENT
  Sex: Male

DRUGS (1)
  1. HIZENTRA [Suspect]
     Active Substance: HUMAN IMMUNOGLOBULIN G
     Dosage: 50 MILLILITER, FLUCTUATING FROM SEVEN TO NINE DAYS
     Route: 058
     Dates: start: 2020

REACTIONS (3)
  - Product temperature excursion issue [Unknown]
  - Unevaluable event [Unknown]
  - No adverse event [Unknown]
